FAERS Safety Report 7812528-2 (Version None)
Quarter: 2011Q4

REPORT INFORMATION
  Report Type: 
  Country: None (occurrence: None)
  Receive Date: 20111013
  Receipt Date: 20111011
  Transmission Date: 20120403
  Serious: No
  Sender: FDA-Public Use
  Company Number: US-PFIZER INC-2011243173

PATIENT
  Sex: Female

DRUGS (4)
  1. GEODON [Suspect]
     Dosage: 20 MG, 2X/DAY
     Route: 048
  2. GEODON [Suspect]
     Indication: MANIA
     Dosage: 40 MG, 2X/DAY
     Route: 048
  3. GEODON [Suspect]
     Dosage: 20 MG, ALTERNATE DAY
     Route: 048
     Dates: end: 20111005
  4. GEODON [Suspect]
     Indication: BIPOLAR DISORDER
     Dosage: 80 MG, 2X/DAY
     Route: 048
     Dates: start: 20080101

REACTIONS (2)
  - RASH [None]
  - FATIGUE [None]
